FAERS Safety Report 5367287-2 (Version None)
Quarter: 2007Q2

REPORT INFORMATION
  Report Type: 
  Country: None (occurrence: None)
  Receive Date: 20070622
  Receipt Date: 20070426
  Transmission Date: 20071010
  Serious: Yes (Death)
  Sender: FDA-Public Use
  Company Number: US-PURDUE-USA_2007_0027654

PATIENT
  Age: 73 Year
  Sex: Male
  Weight: 86 kg

DRUGS (1)
  1. OXYCONTIN [Suspect]
     Indication: CANCER PAIN
     Dosage: 30 MG, SEE TEXT
     Dates: start: 20030923, end: 20031023

REACTIONS (3)
  - METASTATIC NEOPLASM [None]
  - PAIN [None]
  - RESTLESSNESS [None]
